FAERS Safety Report 8425265-0 (Version None)
Quarter: 2012Q2

REPORT INFORMATION
  Report Type: 
  Country: None (occurrence: None)
  Receive Date: 20120604
  Receipt Date: 20120523
  Transmission Date: 20120825
  Serious: Yes (Other)
  Sender: FDA-Public Use
  Company Number: 2012P1031821

PATIENT
  Age: 32 Year
  Sex: Female

DRUGS (1)
  1. CIPROFLOXACIN [Suspect]
     Indication: PYELONEPHRITIS ACUTE
     Dosage: 1000 MG;QD

REACTIONS (9)
  - MUSCULAR WEAKNESS [None]
  - RASH PRURITIC [None]
  - HAEMODIALYSIS [None]
  - MYALGIA [None]
  - RASH MACULO-PAPULAR [None]
  - HYPERKALAEMIA [None]
  - TUBULOINTERSTITIAL NEPHRITIS [None]
  - NEPHRITIS ALLERGIC [None]
  - RHABDOMYOLYSIS [None]
